FAERS Safety Report 25783137 (Version 2)
Quarter: 2025Q3

REPORT INFORMATION
  Report Type: Report from Study
  Country: US (occurrence: US)
  Receive Date: 20250910
  Receipt Date: 20250924
  Transmission Date: 20251020
  Serious: No
  Sender: ABBVIE
  Company Number: US-ABBVIE-6447320

PATIENT
  Age: 51 Year
  Sex: Female
  Weight: 87 kg

DRUGS (3)
  1. VRAYLAR [Suspect]
     Active Substance: CARIPRAZINE
     Indication: Bipolar disorder
     Route: 048
     Dates: start: 20250815
  2. ABILIFY [Concomitant]
     Active Substance: ARIPIPRAZOLE
     Indication: Bipolar disorder
  3. TRILEPTAL [Concomitant]
     Active Substance: OXCARBAZEPINE
     Indication: Bipolar disorder

REACTIONS (3)
  - Limb discomfort [Unknown]
  - Dysstasia [Unknown]
  - Drooling [Unknown]

NARRATIVE: CASE EVENT DATE: 20250101
